FAERS Safety Report 7325809-6 (Version None)
Quarter: 2011Q1

REPORT INFORMATION
  Report Type: 
  Country: None (occurrence: None)
  Receive Date: 20110302
  Receipt Date: 20110222
  Transmission Date: 20110831
  Serious: No
  Sender: FDA-Public Use
  Company Number: US-ROXANE LABORATORIES, INC.-2011-RO-00235RO

PATIENT
  Age: 66 Year
  Sex: Male

DRUGS (1)
  1. PREDNISONE [Suspect]

REACTIONS (1)
  - BLOOD GLUCOSE INCREASED [None]
